FAERS Safety Report 7277014 (Version 7)
Quarter: 2013Q4

REPORT INFORMATION
  Report Type: Report from Study
  Country: TH (occurrence: TH)
  Receive Date: 20100212
  Receipt Date: 20131205
  Transmission Date: 20140711
  Serious: Yes (Hospitalization)
  Sender: FDA-Public Use
  Company Number: US-BRISTOL-MYERS SQUIBB COMPANY-14962575

PATIENT
  Age: 49 Year
  Sex: Female
  Weight: 51 kg

DRUGS (23)
  1. REYATAZ [Suspect]
     Indication: HIV INFECTION
     Dates: start: 20090625, end: 20100121
  2. SUSTIVA TABS [Suspect]
     Indication: HIV INFECTION
     Dosage: 22DEC08-24JUN09=600MG,24JUN09-25JUN09.,DURATION:184DAYS
     Route: 048
     Dates: start: 20081222, end: 20090623
  3. COMBIVIR [Suspect]
     Indication: HIV INFECTION
     Dosage: 22DEC08-24JUN09,24JUN09-25JUN09,25JUN09-
     Dates: start: 20081223, end: 20100121
  4. CENTRUM [Concomitant]
     Indication: NUTRITIONAL SUPPLEMENTATION
     Dosage: RESTARTED ON NOV2009-29JAN2010
     Dates: start: 2007, end: 200905
  5. PARACETAMOL [Concomitant]
     Indication: PAIN
     Dosage: JUL09-20JL09;RESTAR OCT09;30JN-5FB10,25JN12-30JN12,17JAN13-19JN13,19JN-20JN13.
     Dates: start: 20090108, end: 20120130
  6. PARACETAMOL [Concomitant]
     Indication: PYREXIA
     Dosage: JUL09-20JL09;RESTAR OCT09;30JN-5FB10,25JN12-30JN12,17JAN13-19JN13,19JN-20JN13.
     Dates: start: 20090108, end: 20120130
  7. PARACETAMOL [Concomitant]
     Indication: HEADACHE
     Dosage: JUL09-20JL09;RESTAR OCT09;30JN-5FB10,25JN12-30JN12,17JAN13-19JN13,19JN-20JN13.
     Dates: start: 20090108, end: 20120130
  8. PARACETAMOL [Concomitant]
     Indication: MALAISE
     Dosage: JUL09-20JL09;RESTAR OCT09;30JN-5FB10,25JN12-30JN12,17JAN13-19JN13,19JN-20JN13.
     Dates: start: 20090108, end: 20120130
  9. PARACETAMOL [Concomitant]
     Indication: NASOPHARYNGITIS
     Dosage: JUL09-20JL09;RESTAR OCT09;30JN-5FB10,25JN12-30JN12,17JAN13-19JN13,19JN-20JN13.
     Dates: start: 20090108, end: 20120130
  10. TRIAMCINOLONE ACETONIDE [Concomitant]
     Indication: PAIN
     Dosage: 21-25DEC08,MAY09-21JUN09
     Dates: start: 200905, end: 20090621
  11. TRIAMCINOLONE ACETONIDE [Concomitant]
     Indication: APHTHOUS STOMATITIS
     Dosage: 21-25DEC08,MAY09-21JUN09
     Dates: start: 200905, end: 20090621
  12. FOLIC ACID [Concomitant]
     Indication: ANAEMIA
     Dosage: ALSO FROM 02JUL09 TO 10JUL09?8DEC10-JUN11?JUN21011
     Dates: start: 20090422, end: 20090715
  13. CEFUROXIME [Concomitant]
     Indication: URINARY TRACT INFECTION
     Dates: start: 20090625, end: 20090630
  14. FERROUS SULFATE [Concomitant]
     Indication: NUTRITIONAL SUPPLEMENTATION
     Dosage: 8DEC10-JUN2011
     Dates: start: 2002, end: 200906
  15. FERROUS SULFATE [Concomitant]
     Indication: IRON DEFICIENCY ANAEMIA
     Dosage: 8DEC10-JUN2011
     Dates: start: 2002, end: 200906
  16. PYRIDOXINE HCL [Concomitant]
     Indication: NUTRITIONAL SUPPLEMENTATION
     Dosage: 8DEC10-JUN2011
     Dates: start: 2002, end: 200906
  17. PYRIDOXINE HCL [Concomitant]
     Indication: IRON DEFICIENCY ANAEMIA
     Dosage: 8DEC10-JUN2011
     Dates: start: 2002, end: 200906
  18. AMINEURIN [Concomitant]
     Indication: NUTRITIONAL SUPPLEMENTATION
     Dates: start: 2002, end: 200906
  19. VITAMINS + MINERALS [Concomitant]
     Indication: NUTRITIONAL SUPPLEMENTATION
  20. ANTIBIOTICS [Concomitant]
     Indication: PAIN
     Dosage: 21JAN13-23JAN13
     Dates: start: 200905, end: 200906
  21. ANTIBIOTICS [Concomitant]
     Indication: NASOPHARYNGITIS
     Dosage: 21JAN13-23JAN13
     Dates: start: 200905, end: 200906
  22. CHLORPHENIRAMINE [Concomitant]
     Indication: NASOPHARYNGITIS
     Dates: start: 20130119, end: 20130120
  23. PHENYLEPHRINE [Concomitant]
     Indication: NASOPHARYNGITIS
     Dates: start: 20130119, end: 20130120

REACTIONS (3)
  - Hydronephrosis [Not Recovered/Not Resolved]
  - Calculus ureteric [Recovering/Resolving]
  - Nephrolithiasis [Unknown]
